FAERS Safety Report 20867018 (Version 1)
Quarter: 2022Q2

REPORT INFORMATION
  Report Type: Spontaneous
  Country: ES (occurrence: None)
  Receive Date: 20220524
  Receipt Date: 20220524
  Transmission Date: 20220720
  Serious: Yes (Life-Threatening)
  Sender: FDA-Public Use
  Company Number: None

PATIENT
  Age: 37 Week
  Sex: Female

DRUGS (3)
  1. OXYTOCIN [Interacting]
     Active Substance: OXYTOCIN
     Indication: Labour induction
     Route: 042
     Dates: start: 20220420, end: 20220420
  2. DINOPROSTONE [Interacting]
     Active Substance: DINOPROSTONE
     Indication: Labour induction
     Route: 067
     Dates: start: 20220420, end: 20220420
  3. CARBETOCIN [Interacting]
     Active Substance: CARBETOCIN
     Indication: Product used for unknown indication
     Route: 042
     Dates: start: 20220421, end: 20220421

REACTIONS (3)
  - Wrong product administered [Recovered/Resolved]
  - Bradycardia foetal [Recovered/Resolved]
  - Foetal exposure during pregnancy [Recovered/Resolved]

NARRATIVE: CASE EVENT DATE: 20220421
